FAERS Safety Report 6336413-0 (Version None)
Quarter: 2009Q3

REPORT INFORMATION
  Report Type: 
  Country: None (occurrence: None)
  Receive Date: 20090901
  Receipt Date: 20090825
  Transmission Date: 20100115
  Serious: Yes (Other)
  Sender: FDA-Public Use
  Company Number: ES-ALLERGAN-0911128US

PATIENT
  Sex: Female

DRUGS (3)
  1. BOTOX [Suspect]
     Indication: BACK PAIN
     Dosage: UNK
     Route: 030
     Dates: start: 20090101, end: 20090101
  2. PARACETAMOL [Concomitant]
  3. TRAMADOL HCL [Concomitant]

REACTIONS (4)
  - DRY MOUTH [None]
  - EYELID PTOSIS [None]
  - FALL [None]
  - UPPER LIMB FRACTURE [None]
